FAERS Safety Report 4338811-3 (Version None)
Quarter: 2004Q2

REPORT INFORMATION
  Report Type: 
  Country: None (occurrence: None)
  Receive Date: 20040409
  Receipt Date: 20040330
  Transmission Date: 20050107
  Serious: Yes (Hospitalization, Other)
  Sender: FDA-Public Use
  Company Number: 2004017602

PATIENT
  Age: 37 Year
  Sex: Male
  Weight: 63 kg

DRUGS (7)
  1. NORVASC [Suspect]
     Indication: HYPERTENSION
     Dosage: 5 MG (DAILY), ORAL
     Route: 048
     Dates: start: 20040219, end: 18200301
  2. CARDENALIN (DOXAZOSIN) [Suspect]
     Indication: HYPERTENSION
     Dosage: 2 MG (DAILY), ORAL
     Route: 048
     Dates: start: 20040305, end: 20040301
  3. CILOSTAZOL [Suspect]
     Indication: HYPERTENSION
     Dosage: 200 MG (DAILY), ORAL
     Route: 048
     Dates: start: 20031219, end: 20040318
  4. ACARBOSE (ACARBOSE) [Concomitant]
  5. INSULIN INJECTION, BIPHASIC (INSULIN INJECTION,  BIPHASIC) [Concomitant]
  6. LACTOBACILLUS BIFIDUS, LYOPHILIZED (LACTOBACILLUS BIFIDUS, LYOPHILIZED [Concomitant]
  7. CEFACLOR [Concomitant]

REACTIONS (4)
  - BACTERIAL INFECTION [None]
  - DISSEMINATED INTRAVASCULAR COAGULATION [None]
  - GRANULOCYTOPENIA [None]
  - RESPIRATORY TRACT INFECTION [None]
